FAERS Safety Report 7394226-5 (Version None)
Quarter: 2011Q1

REPORT INFORMATION
  Report Type: 
  Country: None (occurrence: None)
  Receive Date: 20110325
  Receipt Date: 20110315
  Transmission Date: 20110831
  Serious: Yes (Hospitalization)
  Sender: FDA-Public Use
  Company Number: WAES 1103GBR00075

PATIENT
  Age: 63 Year
  Sex: Female

DRUGS (3)
  1. ASPIRIN [Concomitant]
  2. TAB LAROPIPRANT (+) NIACIN [Suspect]
     Indication: HIGH DENSITY LIPOPROTEIN DECREASED
     Dosage: 2 GM/DAILY
     Route: 048
     Dates: start: 20100125, end: 20110312
  3. EZETIMIBE/SIMVASTATIN [Suspect]
     Indication: BLOOD CHOLESTEROL ABNORMAL
     Dosage: 10/40 MG/DAILY
     Route: 048
     Dates: start: 20091019, end: 20110312

REACTIONS (1)
  - PANCYTOPENIA [None]
